FAERS Safety Report 17524206 (Version 3)
Quarter: 2020Q3

REPORT INFORMATION
  Report Type: Report from Study
  Country: US (occurrence: US)
  Receive Date: 20200310
  Receipt Date: 20200831
  Transmission Date: 20201102
  Serious: Yes (Other)
  Sender: FDA-Public Use
  Company Number: US-IPSEN BIOPHARMACEUTICALS, INC.-2020-04289

PATIENT
  Age: 65 Year
  Sex: Female
  Weight: 80.7 kg

DRUGS (3)
  1. SOMATULINE DEPOT [Suspect]
     Active Substance: LANREOTIDE ACETATE
     Indication: ACROMEGALY
     Route: 065
  2. SOMATULINE DEPOT [Suspect]
     Active Substance: LANREOTIDE ACETATE
     Dosage: 90 MG (SITE: UPPER OUTER BUTTOCKS, ROTATE SIDES)
     Route: 058
  3. SOMATULINE DEPOT [Suspect]
     Active Substance: LANREOTIDE ACETATE
     Dosage: 60 MG EVERY OTHER MONTH
     Route: 065

REACTIONS (7)
  - Presyncope [Unknown]
  - Oral surgery [Unknown]
  - Gingival disorder [Unknown]
  - Tremor [Unknown]
  - Hyperhidrosis [Unknown]
  - Off label use [Unknown]
  - Glucose tolerance impaired [Unknown]

NARRATIVE: CASE EVENT DATE: 2020
